FAERS Safety Report 20225899 (Version 1)
Quarter: 2021Q4

REPORT INFORMATION
  Report Type: Other
  Country: DE (occurrence: DE)
  Receive Date: 20211224
  Receipt Date: 20211224
  Transmission Date: 20220303
  Serious: Yes (Hospitalization)
  Sender: FDA-Public Use
  Company Number: DE-MACLEODS PHARMACEUTICALS US LTD-MAC2021033791

PATIENT

DRUGS (9)
  1. CLOPIDOGREL [Suspect]
     Active Substance: CLOPIDOGREL BISULFATE
     Indication: Product used for unknown indication
     Dosage: 75 MILLIGRAM, QD, 1-0-0-0
     Route: 048
  2. ASPIRIN [Suspect]
     Active Substance: ASPIRIN
     Indication: Product used for unknown indication
     Dosage: 100 MILLIGRAM, QD, 1-0-0-0
     Route: 048
  3. Bisoprolol 5-1A Pharma [Concomitant]
     Indication: Product used for unknown indication
     Dosage: 2.5 MILLIGRAM, BID (0.5-0-0.5-0)
     Route: 048
  4. SPIRONOLACTONE [Concomitant]
     Active Substance: SPIRONOLACTONE
     Indication: Product used for unknown indication
     Dosage: 25 MILLIGRAM, QD, 1-0-0-0
     Route: 048
  5. Atorvastatin-1A Pharma [Concomitant]
     Indication: Product used for unknown indication
     Dosage: 20 MILLIGRAM, QD, 0-0-1-0
     Route: 048
  6. Metformin 500-1A Pharma [Concomitant]
     Indication: Product used for unknown indication
     Dosage: 500 MILLIGRAM, QD, 1-0-0-0
     Route: 048
  7. URAPIDIL [Concomitant]
     Active Substance: URAPIDIL
     Indication: Product used for unknown indication
     Dosage: 20 MILLIGRAM, TID, 1-0-1-1
     Route: 048
  8. Nitrendipin AL 10 [Concomitant]
     Indication: Product used for unknown indication
     Dosage: 10 MILLIGRAM, QD, 1-0-0-0
     Route: 048
  9. Ramipril-ISIS 5 mg [Concomitant]
     Indication: Product used for unknown indication
     Dosage: 5 MILLIGRAM, QD, 1-0-0-0
     Route: 048

REACTIONS (3)
  - Dizziness [Unknown]
  - Anaemia [Unknown]
  - Haematochezia [Unknown]
